FAERS Safety Report 10020671 (Version 2)
Quarter: 2014Q2

REPORT INFORMATION
  Report Type: Spontaneous
  Country: JP (occurrence: JP)
  Receive Date: 20140319
  Receipt Date: 20140410
  Transmission Date: 20141212
  Serious: Yes (Hospitalization)
  Sender: FDA-Public Use
  Company Number: JP-ROCHE-1363860

PATIENT
  Age: 71 Year
  Sex: Female
  Weight: 46 kg

DRUGS (2)
  1. PEGASYS [Suspect]
     Indication: CHRONIC HEPATITIS C
     Dosage: UNCERTAIN DOSAGE AND ONCE
     Route: 058
     Dates: start: 20140107, end: 20140107
  2. COPEGUS [Suspect]
     Indication: CHRONIC HEPATITIS C
     Dosage: UNCERTAIN DOSAGE AND ONCE
     Route: 048
     Dates: start: 20140107, end: 20140113

REACTIONS (11)
  - Pyrexia [Unknown]
  - Hyponatraemia [Recovering/Resolving]
  - Altered state of consciousness [Recovering/Resolving]
  - Blood antidiuretic hormone decreased [Recovered/Resolved]
  - Blood corticotrophin decreased [Recovered/Resolved]
  - Lymphocytic hypophysitis [Unknown]
  - Polyuria [Recovering/Resolving]
  - White blood cell count decreased [Recovering/Resolving]
  - Neutrophil count decreased [Recovering/Resolving]
  - Malaise [Recovering/Resolving]
  - Interstitial lung disease [Unknown]
